FAERS Safety Report 16628913 (Version 2)
Quarter: 2019Q3

REPORT INFORMATION
  Report Type: Spontaneous
  Country: US (occurrence: US)
  Receive Date: 20190725
  Receipt Date: 20190726
  Transmission Date: 20191004
  Serious: No
  Sender: FDA-Public Use
  Company Number: US-JNJFOC-20190723114

PATIENT
  Age: 52 Year
  Sex: Female
  Weight: 53.12 kg

DRUGS (6)
  1. NEUTROGENA RAPID WRINKLE REPAIR REGENERATING CREAM [Concomitant]
     Active Substance: COSMETICS
     Indication: PRODUCT USED FOR UNKNOWN INDICATION
     Route: 065
  2. BENADRYL ALLERGY ULTRATAB [Suspect]
     Active Substance: DIPHENHYDRAMINE HYDROCHLORIDE
     Indication: ADVERSE REACTION
     Dosage: 1/2 TABLET TWICE (HALF A TABLET ON THE EVENING OF 14-JUL-2019 AND HALF A TABLET ON THE MORNING OF 15
     Route: 048
     Dates: start: 20190714, end: 20190715
  3. BENADRYL ALLERGY ULTRATAB [Suspect]
     Active Substance: DIPHENHYDRAMINE HYDROCHLORIDE
     Indication: BURNING SENSATION
  4. BENADRYL ALLERGY ULTRATAB [Suspect]
     Active Substance: DIPHENHYDRAMINE HYDROCHLORIDE
     Indication: SWELLING FACE
  5. MOTRIN [Suspect]
     Active Substance: IBUPROFEN
     Indication: ADVERSE REACTION
     Dosage: HALF CAPLET TAKEN ONCE?FORM OF ADMIN: CAPLET
     Route: 065
     Dates: start: 20190714
  6. NEOSPORIN NEO TO GO SPRAY PAIN RELIEVING [Concomitant]
     Indication: ADVERSE REACTION
     Dosage: FORM OF ADMIN: FOAMING LIQUID
     Route: 065

REACTIONS (3)
  - Product use in unapproved indication [Unknown]
  - Wrong technique in product usage process [Unknown]
  - Expired product administered [Unknown]

NARRATIVE: CASE EVENT DATE: 20190714
